FAERS Safety Report 17915095 (Version 3)
Quarter: 2020Q3

REPORT INFORMATION
  Report Type: Report from Study
  Country: None (occurrence: US)
  Receive Date: 20200618
  Receipt Date: 20200812
  Transmission Date: 20201103
  Serious: Yes (Other)
  Sender: FDA-Public Use
  Company Number: US-ABBVIE-20K-163-3378483-00

PATIENT
  Age: 53 Year
  Sex: Female

DRUGS (4)
  1. HUMIRA [Suspect]
     Active Substance: ADALIMUMAB
     Dosage: CITRATE FREE
     Route: 058
  2. HUMIRA [Suspect]
     Active Substance: ADALIMUMAB
     Dosage: CITRATE FREE
     Route: 058
  3. HUMIRA [Suspect]
     Active Substance: ADALIMUMAB
     Indication: RHEUMATOID ARTHRITIS
     Dosage: CITRATE FREE
     Route: 058
  4. HUMIRA [Suspect]
     Active Substance: ADALIMUMAB
     Route: 058

REACTIONS (24)
  - Peripheral swelling [Recovering/Resolving]
  - Illness [Unknown]
  - Bone pain [Not Recovered/Not Resolved]
  - Aneurysm [Recovering/Resolving]
  - Loss of consciousness [Unknown]
  - Dysgraphia [Unknown]
  - Joint swelling [Recovering/Resolving]
  - Claustrophobia [Unknown]
  - Bowel movement irregularity [Not Recovered/Not Resolved]
  - Ear pain [Not Recovered/Not Resolved]
  - Mobility decreased [Recovering/Resolving]
  - Balance disorder [Unknown]
  - Vertigo [Unknown]
  - Complication associated with device [Not Recovered/Not Resolved]
  - Headache [Unknown]
  - Seizure [Not Recovered/Not Resolved]
  - Loss of personal independence in daily activities [Unknown]
  - Panic attack [Unknown]
  - Toothache [Not Recovered/Not Resolved]
  - Facial pain [Not Recovered/Not Resolved]
  - Grip strength decreased [Recovering/Resolving]
  - Sensitivity to weather change [Unknown]
  - Arthritis [Not Recovered/Not Resolved]
  - Ear disorder [Not Recovered/Not Resolved]

NARRATIVE: CASE EVENT DATE: 201407
